FAERS Safety Report 19722740 (Version 1)
Quarter: 2021Q3

REPORT INFORMATION
  Report Type: Report from Study
  Country: EC (occurrence: EC)
  Receive Date: 20210819
  Receipt Date: 20210819
  Transmission Date: 20211014
  Serious: Yes (Death, Hospitalization, Other)
  Sender: FDA-Public Use
  Company Number: ES-GLAXOSMITHKLINE-EC2021GSK174665

PATIENT
  Sex: Male

DRUGS (4)
  1. LAMIVUDINE. [Suspect]
     Active Substance: LAMIVUDINE
     Indication: HIV INFECTION
     Dosage: UNK
     Dates: start: 2015
  2. ITRACONAZOLE. [Suspect]
     Active Substance: ITRACONAZOLE
     Indication: ANTIFUNGAL TREATMENT
     Dosage: UNK, 4.7 MONTHS
     Dates: start: 2015
  3. ABACAVIR. [Suspect]
     Active Substance: ABACAVIR
     Indication: HIV INFECTION
     Dosage: UNK
     Dates: start: 2015
  4. EFAVIRENZ. [Suspect]
     Active Substance: EFAVIRENZ
     Indication: HIV INFECTION
     Dosage: UNK
     Dates: start: 2015

REACTIONS (9)
  - Pyrexia [Unknown]
  - Diarrhoea [Unknown]
  - Lymphadenopathy [Unknown]
  - Disease recurrence [Fatal]
  - Treatment noncompliance [Unknown]
  - Histoplasmosis disseminated [Fatal]
  - Splenomegaly [Unknown]
  - Hepatomegaly [Unknown]
  - Virologic failure [Unknown]
